FAERS Safety Report 25171761 (Version 2)
Quarter: 2025Q2

REPORT INFORMATION
  Report Type: Spontaneous
  Country: US (occurrence: US)
  Receive Date: 20250408
  Receipt Date: 20250408
  Transmission Date: 20250717
  Serious: Yes (Death, Other)
  Sender: AMGEN
  Company Number: US-AMGEN-USASP2025064375

PATIENT
  Age: 8 Month
  Sex: Male

DRUGS (3)
  1. FILGRASTIM [Suspect]
     Active Substance: FILGRASTIM
     Indication: Neutropenia
     Route: 065
  2. CYCLOPHOSPHAMIDE [Concomitant]
     Active Substance: CYCLOPHOSPHAMIDE
  3. TOPOTECAN [Concomitant]
     Active Substance: TOPOTECAN HYDROCHLORIDE

REACTIONS (6)
  - Hyperammonaemia [Fatal]
  - Ureaplasma infection [Unknown]
  - Neutropenia [Not Recovered/Not Resolved]
  - Hypoxic-ischaemic encephalopathy [Unknown]
  - Brain herniation [Unknown]
  - Drug ineffective [Unknown]
